FAERS Safety Report 5640339-5 (Version None)
Quarter: 2008Q1

REPORT INFORMATION
  Report Type: 
  Country: None (occurrence: None)
  Receive Date: 20080227
  Receipt Date: 20080225
  Transmission Date: 20080703
  Serious: No
  Sender: FDA-Public Use
  Company Number: US-BAXTER-2008BH001455

PATIENT
  Sex: Female

DRUGS (1)
  1. HEPARIN SODIUM [Suspect]
     Indication: ARTERIOVENOUS FISTULA OPERATION
     Route: 042
     Dates: start: 20080214, end: 20080214

REACTIONS (1)
  - BLOOD PRESSURE DECREASED [None]
